FAERS Safety Report 8210098-0 (Version None)
Quarter: 2012Q1

REPORT INFORMATION
  Report Type: 
  Country: None (occurrence: None)
  Receive Date: 20120314
  Receipt Date: 20111212
  Transmission Date: 20120608
  Serious: No
  Sender: FDA-Public Use
  Company Number: US-ASTRAZENECA-2011SE75081

PATIENT
  Sex: Female
  Weight: 45.4 kg

DRUGS (6)
  1. TOPROL-XL [Suspect]
     Route: 048
  2. ATIVAN [Concomitant]
  3. PERCOCET [Concomitant]
  4. TOPROL-XL [Suspect]
     Indication: HYPERTENSION
     Route: 048
  5. TOPROL-XL [Suspect]
     Route: 048
  6. ASPIRIN [Concomitant]

REACTIONS (4)
  - BLOOD PRESSURE INCREASED [None]
  - DEMENTIA ALZHEIMER'S TYPE [None]
  - MEMORY IMPAIRMENT [None]
  - DRUG INEFFECTIVE [None]
